FAERS Safety Report 9890576 (Version 1)
Quarter: 2014Q1

REPORT INFORMATION
  Report Type: Spontaneous
  Country: US (occurrence: None)
  Receive Date: 20140210
  Receipt Date: 20140210
  Transmission Date: 20141002
  Serious: No
  Sender: FDA-Public Use
  Company Number: None

PATIENT
  Age: 61 Year
  Sex: Male
  Weight: 99.5 kg

DRUGS (1)
  1. ENALAPRIL [Suspect]
     Indication: HYPERTENSION
     Route: 048
     Dates: start: 20130325, end: 20140124

REACTIONS (1)
  - Angioedema [None]
